FAERS Safety Report 19958105 (Version 3)
Quarter: 2021Q4

REPORT INFORMATION
  Report Type: Spontaneous
  Country: CN (occurrence: None)
  Receive Date: 20211015
  Receipt Date: 20211118
  Transmission Date: 20220303
  Serious: Yes (Other)
  Sender: FDA-Public Use
  Company Number: 2021A772503

PATIENT
  Age: 74 Year
  Sex: Female
  Weight: 60 kg

DRUGS (1)
  1. TAGRISSO [Suspect]
     Active Substance: OSIMERTINIB
     Indication: Lung adenocarcinoma
     Route: 048
     Dates: start: 20210601, end: 20210930

REACTIONS (15)
  - Brain neoplasm [Recovering/Resolving]
  - Breast mass [Recovering/Resolving]
  - Seizure [Unknown]
  - Hemiplegia [Recovering/Resolving]
  - Epilepsy [Recovering/Resolving]
  - Condition aggravated [Recovering/Resolving]
  - Nerve compression [Recovering/Resolving]
  - Drug resistance [Recovering/Resolving]
  - Fall [Recovering/Resolving]
  - Cough [Recovering/Resolving]
  - Emotional distress [Unknown]
  - Swelling face [Unknown]
  - Lymphadenopathy [Unknown]
  - Diarrhoea [Recovered/Resolved]
  - Drug ineffective [Unknown]
